FAERS Safety Report 24902641 (Version 3)
Quarter: 2025Q2

REPORT INFORMATION
  Report Type: Report from Study
  Country: BR (occurrence: BR)
  Receive Date: 20250130
  Receipt Date: 20250408
  Transmission Date: 20250717
  Serious: Yes (Other)
  Sender: TAKEDA
  Company Number: BR-TAKEDA-2022TUS056865

PATIENT
  Sex: Male
  Weight: 78 kg

DRUGS (3)
  1. VEDOLIZUMAB [Suspect]
     Active Substance: VEDOLIZUMAB
     Indication: Crohn^s disease
  2. AZATHIOPRINE [Suspect]
     Active Substance: AZATHIOPRINE
     Indication: Crohn^s disease
  3. PAMELOR [Concomitant]
     Active Substance: NORTRIPTYLINE HYDROCHLORIDE
     Indication: Antidepressant therapy

REACTIONS (9)
  - Intestinal stenosis [Unknown]
  - Anal fistula [Unknown]
  - Anal incontinence [Recovered/Resolved]
  - Oropharyngeal discomfort [Unknown]
  - Sensation of foreign body [Unknown]
  - Aphthous ulcer [Unknown]
  - Inappropriate schedule of product administration [Unknown]
  - Eye disorder [Unknown]
  - Mental disorder [Unknown]
